FAERS Safety Report 10880362 (Version 21)
Quarter: 2017Q2

REPORT INFORMATION
  Report Type: Report from Study
  Country: CA (occurrence: CA)
  Receive Date: 20150302
  Receipt Date: 20170411
  Transmission Date: 20170829
  Serious: Yes (Other)
  Sender: FDA-Public Use
  Company Number: CA-ROCHE-1460649

PATIENT
  Age: 29 Year
  Sex: Female
  Weight: 61 kg

DRUGS (14)
  1. ACTEMRA [Suspect]
     Active Substance: TOCILIZUMAB
     Indication: RHEUMATOID ARTHRITIS
     Route: 042
     Dates: start: 20140812
  2. ACTEMRA [Suspect]
     Active Substance: TOCILIZUMAB
     Route: 042
     Dates: start: 20150205
  3. CELEBREX [Concomitant]
     Active Substance: CELECOXIB
  4. ACTEMRA [Suspect]
     Active Substance: TOCILIZUMAB
     Route: 042
     Dates: start: 20141016
  5. ACTEMRA [Suspect]
     Active Substance: TOCILIZUMAB
     Route: 042
     Dates: start: 20160225
  6. PLAQUENIL [Concomitant]
     Active Substance: HYDROXYCHLOROQUINE SULFATE
  7. ACTEMRA [Suspect]
     Active Substance: TOCILIZUMAB
     Route: 042
  8. METHOTREXATE. [Concomitant]
     Active Substance: METHOTREXATE
  9. SULFASALAZINE. [Concomitant]
     Active Substance: SULFASALAZINE
  10. ACTEMRA [Suspect]
     Active Substance: TOCILIZUMAB
     Route: 042
     Dates: start: 20140909
  11. ENBREL [Concomitant]
     Active Substance: ETANERCEPT
  12. ACTEMRA [Suspect]
     Active Substance: TOCILIZUMAB
     Route: 042
  13. PREDNISONE. [Concomitant]
     Active Substance: PREDNISONE
  14. ACTEMRA [Suspect]
     Active Substance: TOCILIZUMAB
     Route: 042
     Dates: start: 20141218

REACTIONS (20)
  - Weight increased [Unknown]
  - Migraine [Unknown]
  - Lower respiratory tract congestion [Recovering/Resolving]
  - Oropharyngeal pain [Recovering/Resolving]
  - Heart rate increased [Unknown]
  - Haematochezia [Unknown]
  - Miliaria [Recovered/Resolved]
  - Vomiting [Recovering/Resolving]
  - Cough [Recovering/Resolving]
  - Infusion related reaction [Unknown]
  - Diarrhoea [Unknown]
  - Pyrexia [Recovered/Resolved]
  - Body temperature increased [Unknown]
  - Sinusitis [Not Recovered/Not Resolved]
  - Bronchitis [Recovered/Resolved]
  - Headache [Recovering/Resolving]
  - Arthralgia [Unknown]
  - Heart rate increased [Unknown]
  - Nasal congestion [Recovering/Resolving]
  - Viral upper respiratory tract infection [Recovered/Resolved]

NARRATIVE: CASE EVENT DATE: 20140909
